FAERS Safety Report 4967966-2 (Version None)
Quarter: 2006Q1

REPORT INFORMATION
  Report Type: 
  Country: None (occurrence: None)
  Receive Date: 20060201
  Receipt Date: 20051219
  Transmission Date: 20060701
  Serious: No
  Sender: FDA-Public Use
  Company Number: 2005PV006064

PATIENT
  Age: 65 Year
  Sex: Male
  Weight: 98.4306 kg

DRUGS (12)
  1. BYETTA [Suspect]
     Indication: DIABETES MELLITUS NON-INSULIN-DEPENDENT
     Dosage: 5 MCG;BID;SC
     Route: 058
     Dates: start: 20051214, end: 20051216
  2. ALLOPURINOL [Concomitant]
  3. INDAPAMIDE [Concomitant]
  4. AMARYL [Concomitant]
  5. METFORMIN [Concomitant]
  6. ATENOLOL [Concomitant]
  7. AVANDIA [Concomitant]
  8. AGGRENOX [Concomitant]
  9. DILTIAZEM HCL [Concomitant]
  10. VYTORIN [Concomitant]
  11. BAYER ASA [Concomitant]
  12. PEPCID [Concomitant]

REACTIONS (4)
  - CHEST PAIN [None]
  - INJECTION SITE WARMTH [None]
  - NAUSEA [None]
  - VOMITING [None]
